FAERS Safety Report 8857465 (Version 2)
Quarter: 2012Q4

REPORT INFORMATION
  Report Type: 
  Country: US (occurrence: US)
  Receive Date: 20121024
  Receipt Date: 20121024
  Transmission Date: 20130627
  Serious: Yes (Death)
  Sender: FDA-Public Use
  Company Number: US-ROCHE-GNE237788

PATIENT
  Sex: Female
  Weight: 56.75 kg

DRUGS (2)
  1. RAPTIVA [Suspect]
     Indication: PSORIASIS
     Dosage: Conditining dose 39.7 mg
     Route: 058
     Dates: start: 200506
  2. RAPTIVA [Suspect]
     Indication: PUSTULAR PSORIASIS

REACTIONS (5)
  - Death [Fatal]
  - Menstruation irregular [Unknown]
  - Tooth abscess [Unknown]
  - Pruritus [Unknown]
  - Skin burning sensation [Unknown]
